FAERS Safety Report 14592370 (Version 1)
Quarter: 2018Q1

REPORT INFORMATION
  Report Type: Spontaneous
  Country: US (occurrence: US)
  Receive Date: 20180302
  Receipt Date: 20180302
  Transmission Date: 20180509
  Serious: No
  Sender: FDA-Public Use
  Company Number: US-NOVOPROD-545366

PATIENT
  Age: 65 Year
  Sex: Female
  Weight: 87.75 kg

DRUGS (3)
  1. VICTOZA [Suspect]
     Active Substance: LIRAGLUTIDE
     Dosage: 1.2 MG, QD
     Route: 058
     Dates: start: 20170501, end: 20170507
  2. TAMOXIFEN [Concomitant]
     Active Substance: TAMOXIFEN
     Indication: NEOPLASM MALIGNANT
     Dosage: UNK
  3. VICTOZA [Suspect]
     Active Substance: LIRAGLUTIDE
     Indication: TYPE 2 DIABETES MELLITUS
     Dosage: 0.6 MG, QD
     Route: 058
     Dates: start: 201704, end: 201704

REACTIONS (8)
  - Migraine [Recovered/Resolved]
  - Nervousness [Recovered/Resolved]
  - Abdominal distension [Recovering/Resolving]
  - Vomiting [Recovered/Resolved]
  - Dyspepsia [Recovering/Resolving]
  - Pharyngeal oedema [Recovering/Resolving]
  - Nausea [Recovered/Resolved]
  - Product use issue [Unknown]

NARRATIVE: CASE EVENT DATE: 201704
